FAERS Safety Report 20743895 (Version 1)
Quarter: 2022Q2

REPORT INFORMATION
  Report Type: Spontaneous
  Country: CN (occurrence: CN)
  Receive Date: 20220425
  Receipt Date: 20220425
  Transmission Date: 20220720
  Serious: Yes (Other)
  Sender: FDA-Public Use
  Company Number: CN-PFIZER INC-202200568593

PATIENT
  Age: 5 Month
  Sex: Male
  Weight: 8.5 kg

DRUGS (1)
  1. AZITHROMYCIN [Suspect]
     Active Substance: AZITHROMYCIN
     Indication: Therapeutic procedure
     Dosage: 50 MG, 1X/DAY
     Route: 048
     Dates: start: 20220313, end: 20220317

REACTIONS (6)
  - Lymphocyte percentage increased [Unknown]
  - Neutrophil percentage decreased [Unknown]
  - Diarrhoea [Recovered/Resolved]
  - Haemoglobin increased [Unknown]
  - Platelet count increased [Unknown]
  - Product use issue [Unknown]

NARRATIVE: CASE EVENT DATE: 20220301
